FAERS Safety Report 20737136 (Version 11)
Quarter: 2024Q1

REPORT INFORMATION
  Report Type: Spontaneous
  Country: US (occurrence: US)
  Receive Date: 20220421
  Receipt Date: 20240117
  Transmission Date: 20240410
  Serious: Yes (Hospitalization, Other)
  Sender: FDA-Public Use
  Company Number: US-PFIZER INC-202200451361

PATIENT
  Age: 85 Year
  Sex: Female
  Weight: 90.72 kg

DRUGS (10)
  1. IBRANCE [Suspect]
     Active Substance: PALBOCICLIB
     Indication: Breast cancer metastatic
     Dosage: 125 MG, CYCLIC (WITH/WITHOUT FOOD FOR 21 DAYS, FOLLOWED BY 7 DAYS OFF, REPEATED EVERY 28 DAYS)
     Route: 048
     Dates: start: 20220201
  2. IBRANCE [Suspect]
     Active Substance: PALBOCICLIB
     Dosage: TAKE 1 P.O. Q. DAY FOR 21 DAYS AND 7 DAYS OFF
     Dates: start: 20220216
  3. IBRANCE [Suspect]
     Active Substance: PALBOCICLIB
     Dosage: 125MG DAILY X 21 DAYS FOLLOWED BY 7 DAYS OFF WITH FASLODEX 500 MG X 6 CYCLES
     Route: 048
     Dates: start: 20220301, end: 202309
  4. IBRANCE [Suspect]
     Active Substance: PALBOCICLIB
     Dosage: TAKE 1 TAB BY MOUTH ONCE DAILY WITH OR W/O FOOD FOR 21 DAYS, FOLLOWED BY 7 DAYS OFF EVERY 28 DAYS
     Dates: start: 20221130
  5. IBRANCE [Suspect]
     Active Substance: PALBOCICLIB
     Dosage: 1 PO (PER ORAL) QD FOR 21 DAYS FOLLOWED BY 28 DAYS OFF
  6. FASLODEX [Concomitant]
     Active Substance: FULVESTRANT
     Dosage: 500 MG, CYCLIC
     Dates: start: 20220301
  7. LOSARTAN [Concomitant]
     Active Substance: LOSARTAN
     Indication: Blood pressure abnormal
     Dosage: UNK
  8. ZOLOFT [Concomitant]
     Active Substance: SERTRALINE HYDROCHLORIDE
     Dosage: UNK
  9. ROPINIROLE [Concomitant]
     Active Substance: ROPINIROLE
     Indication: Restless legs syndrome
     Dosage: UNK
  10. AMLODIPINE BESYLATE [Concomitant]
     Active Substance: AMLODIPINE BESYLATE
     Dosage: 5 MG
     Dates: start: 2022

REACTIONS (10)
  - Thrombocytopenia [Unknown]
  - Anaemia [Unknown]
  - Mass [Unknown]
  - Fungal infection [Unknown]
  - Localised infection [Unknown]
  - Pain in extremity [Unknown]
  - Cough [Unknown]
  - Nasopharyngitis [Unknown]
  - Neck mass [Unknown]
  - Off label use [Unknown]

NARRATIVE: CASE EVENT DATE: 20231113
